FAERS Safety Report 7403345-6 (Version None)
Quarter: 2011Q2

REPORT INFORMATION
  Report Type: 
  Country: None (occurrence: None)
  Receive Date: 20110408
  Receipt Date: 20110401
  Transmission Date: 20111010
  Serious: Yes (Hospitalization)
  Sender: FDA-Public Use
  Company Number: A0773197A

PATIENT
  Age: 60 Year
  Sex: Male
  Weight: 97.7 kg

DRUGS (1)
  1. AVANDIA [Suspect]
     Indication: DIABETES MELLITUS
     Dosage: 4MG PER DAY
     Route: 048
     Dates: start: 20010221, end: 20040925

REACTIONS (4)
  - CORONARY ARTERY DISEASE [None]
  - MUSCLE STRAIN [None]
  - MYOCARDIAL INFARCTION [None]
  - CORONARY ARTERY STENOSIS [None]
